FAERS Safety Report 13338917 (Version 7)
Quarter: 2018Q1

REPORT INFORMATION
  Report Type: Spontaneous
  Country: US (occurrence: US)
  Receive Date: 20170315
  Receipt Date: 20180219
  Transmission Date: 20180508
  Serious: Yes (Congenital Anomaly, Other)
  Sender: FDA-Public Use
  Company Number: PHEH2017US007370

PATIENT
  Sex: Male

DRUGS (3)
  1. ZOFRAN [Suspect]
     Active Substance: ONDANSETRON HYDROCHLORIDE
     Indication: FOETAL EXPOSURE DURING PREGNANCY
     Route: 064
  2. ZOFRAN ODT [Suspect]
     Active Substance: ONDANSETRON HYDROCHLORIDE
     Indication: FOETAL EXPOSURE DURING PREGNANCY
     Route: 064
  3. ONDANSETRON [Suspect]
     Active Substance: ONDANSETRON
     Indication: FOETAL EXPOSURE DURING PREGNANCY
     Dosage: MOTHER DOSE: 08 MG, TID
     Route: 064

REACTIONS (18)
  - Arthropod bite [Unknown]
  - Viral infection [Unknown]
  - Abdominal pain upper [Unknown]
  - Ear pain [Unknown]
  - Neonatal tachypnoea [Recovered/Resolved]
  - Foetal exposure during pregnancy [Unknown]
  - Cardiac murmur [Unknown]
  - Emotional distress [Unknown]
  - Ankyloglossia congenital [Unknown]
  - Lymphadenitis [Unknown]
  - Pyrexia [Unknown]
  - Road traffic accident [Unknown]
  - Cellulitis [Unknown]
  - Cough [Unknown]
  - Rash generalised [Unknown]
  - Swelling [Unknown]
  - Head injury [Unknown]
  - Ventricular septal defect [Unknown]
